FAERS Safety Report 4468869-2 (Version None)
Quarter: 2004Q4

REPORT INFORMATION
  Report Type: 
  Country: None (occurrence: None)
  Receive Date: 20041008
  Receipt Date: 20040928
  Transmission Date: 20050328
  Serious: Yes (Death, Life-Threatening)
  Sender: FDA-Public Use
  Company Number: GB-JNJFOC-20040805542

PATIENT
  Sex: Female

DRUGS (7)
  1. REMICADE [Suspect]
     Indication: RHEUMATOID ARTHRITIS
     Route: 042
  2. BUPRENORPHINE HCL [Concomitant]
     Route: 065
  3. LANSOPRAZOLE [Concomitant]
  4. CO-CODAMOL [Concomitant]
  5. CO-CODAMOL [Concomitant]
  6. CALCEOS [Concomitant]
  7. CALCEOS [Concomitant]

REACTIONS (2)
  - DEATH [None]
  - GENERAL PHYSICAL HEALTH DETERIORATION [None]
